FAERS Safety Report 9805988 (Version 1)
Quarter: 2014Q1

REPORT INFORMATION
  Report Type: Report from Study
  Country: CA (occurrence: CA)
  Receive Date: 20140109
  Receipt Date: 20140109
  Transmission Date: 20141002
  Serious: Yes (Other)
  Sender: FDA-Public Use
  Company Number: CA-JNJFOC-20140102104

PATIENT
  Age: 69 Year
  Sex: Male
  Weight: 130 kg

DRUGS (11)
  1. REMICADE [Suspect]
     Indication: CROHN^S DISEASE
     Route: 042
     Dates: start: 20120424
  2. NITRO [Concomitant]
     Dosage: AS AND WHEN REQUIRED.
     Route: 065
  3. RAMIPRIL [Concomitant]
     Route: 065
  4. METOPROLOL [Concomitant]
     Route: 065
  5. LIPITOR [Concomitant]
     Route: 065
  6. BROMAZEPAM [Concomitant]
     Route: 065
  7. B12 [Concomitant]
     Route: 065
  8. VITAMIN D [Concomitant]
     Route: 065
  9. VITAMIN C [Concomitant]
     Route: 065
  10. DEXILANT [Concomitant]
     Route: 065
  11. ASPIRIN [Concomitant]
     Route: 065

REACTIONS (5)
  - Ulcer [Not Recovered/Not Resolved]
  - Rheumatoid nodule [Not Recovered/Not Resolved]
  - Arthralgia [Not Recovered/Not Resolved]
  - Joint stiffness [Not Recovered/Not Resolved]
  - Malaise [Not Recovered/Not Resolved]
